FAERS Safety Report 9055572 (Version 1)
Quarter: 2013Q1

REPORT INFORMATION
  Report Type: Spontaneous
  Country: US (occurrence: US)
  Receive Date: 20130206
  Receipt Date: 20130206
  Transmission Date: 20140127
  Serious: Yes (Hospitalization, Other)
  Sender: FDA-Public Use
  Company Number: US-MUTUAL PHARMACEUTICAL COMPANY, INC.-ALBT20130001

PATIENT
  Age: 22 Year
  Sex: Female

DRUGS (4)
  1. ALBUTEROL [Suspect]
     Indication: ASTHMA
  2. ALBUTEROL [Suspect]
     Route: 065
  3. FLUTICASONE/SALMETEROL 250/50 UG [Concomitant]
     Indication: PRODUCT USED FOR UNKNOWN INDICATION
     Route: 065
  4. MONTELUKAST [Concomitant]
     Indication: PRODUCT USED FOR UNKNOWN INDICATION
     Route: 065

REACTIONS (1)
  - Lactic acidosis [Recovered/Resolved]
